FAERS Safety Report 21869649 (Version 7)
Quarter: 2023Q4

REPORT INFORMATION
  Report Type: Spontaneous
  Country: US (occurrence: US)
  Receive Date: 20230117
  Receipt Date: 20231123
  Transmission Date: 20240110
  Serious: Yes (Hospitalization, Other)
  Sender: FDA-Public Use
  Company Number: US-UNITED THERAPEUTICS-UNT-2023-000844

PATIENT
  Age: 33 Year
  Sex: Female
  Weight: 45.351 kg

DRUGS (6)
  1. REMODULIN [Suspect]
     Active Substance: TREPROSTINIL
     Indication: Pulmonary arterial hypertension
     Dosage: 0.050 ?G/KG, CONTINUING (SELF-FILLED WITH 2.6 ML PER CASSETTE AT A PUMP RATE OF 29 MCL PER HOUR)
     Route: 058
  2. REMODULIN [Suspect]
     Active Substance: TREPROSTINIL
     Dosage: UNK, CONTINUING (SELF-FILLED WITH 2 ML PER CASSETTE AT A PUMP RATE OF 29 MCL PER HOUR)
     Route: 058
  3. REMODULIN [Suspect]
     Active Substance: TREPROSTINIL
     Dosage: UNK, CONTINUING
     Route: 058
     Dates: start: 20230103
  4. TYLENOL [Suspect]
     Active Substance: ACETAMINOPHEN
     Indication: Systemic lupus erythematosus
     Dosage: UNK
     Route: 065
  5. OPSUMIT [Concomitant]
     Active Substance: MACITENTAN
     Indication: Product used for unknown indication
     Dosage: UNK
     Route: 065
  6. SILDENAFIL [Concomitant]
     Active Substance: SILDENAFIL
     Indication: Product used for unknown indication
     Dosage: UNK
     Route: 065

REACTIONS (30)
  - Urinary tract infection [Unknown]
  - Abdominal infection [Unknown]
  - Clostridium difficile infection [Unknown]
  - Malaise [Unknown]
  - Device failure [Recovered/Resolved]
  - Diarrhoea [Unknown]
  - Nausea [Unknown]
  - Headache [Unknown]
  - Asthenia [Unknown]
  - Systemic lupus erythematosus [Unknown]
  - Vomiting [Unknown]
  - Infusion site pain [Unknown]
  - Device malfunction [Recovered/Resolved]
  - Device failure [Recovered/Resolved]
  - Device failure [Recovered/Resolved]
  - Device issue [Unknown]
  - Device leakage [Recovered/Resolved]
  - Device failure [Recovered/Resolved]
  - Dizziness [Unknown]
  - Device failure [Recovered/Resolved]
  - Incorrect dose administered by device [Unknown]
  - Device failure [Recovered/Resolved]
  - Device issue [Recovered/Resolved]
  - Weight decreased [Recovered/Resolved]
  - Device failure [Recovered/Resolved]
  - Pain in extremity [Unknown]
  - Device dislocation [Unknown]
  - Device malfunction [Unknown]
  - Device failure [Recovered/Resolved]
  - Device malfunction [Unknown]

NARRATIVE: CASE EVENT DATE: 20230101
